FAERS Safety Report 10692646 (Version 1)
Quarter: 2015Q1

REPORT INFORMATION
  Report Type: Report from Study
  Country: CA (occurrence: CA)
  Receive Date: 20150106
  Receipt Date: 20150106
  Transmission Date: 20150720
  Serious: Yes (Other)
  Sender: FDA-Public Use
  Company Number: CA-JNJFOC-20141220731

PATIENT
  Age: 28 Year
  Sex: Male
  Weight: 76 kg

DRUGS (1)
  1. REMICADE [Suspect]
     Active Substance: INFLIXIMAB
     Indication: CROHN^S DISEASE
     Dosage: ONCE IN EVERY 6-8 WEEKS
     Route: 042

REACTIONS (1)
  - Perirectal abscess [Not Recovered/Not Resolved]

NARRATIVE: CASE EVENT DATE: 20141222
